FAERS Safety Report 10983843 (Version 1)
Quarter: 2015Q2

REPORT INFORMATION
  Report Type: Spontaneous
  Country: JP (occurrence: JP)
  Receive Date: 20150403
  Receipt Date: 20150403
  Transmission Date: 20150821
  Serious: Yes (Hospitalization, Other)
  Sender: FDA-Public Use
  Company Number: JP-JNJFOC-20140415229

PATIENT

DRUGS (21)
  1. CRAVIT [Concomitant]
     Active Substance: LEVOFLOXACIN
     Route: 048
  2. CALONAL [Concomitant]
     Active Substance: ACETAMINOPHEN
     Route: 048
  3. FLUNITRAZEPAM [Concomitant]
     Active Substance: FLUNITRAZEPAM
     Route: 048
  4. ADOFEED [Concomitant]
     Active Substance: FLURBIPROFEN
     Route: 062
  5. DALACIN [Concomitant]
     Active Substance: CLINDAMYCIN\CLINDAMYCIN PHOSPHATE
     Route: 065
  6. ALESION [Concomitant]
     Active Substance: EPINASTINE HYDROCHLORIDE
     Route: 048
  7. ALLERMIST [Concomitant]
     Active Substance: FLUTICASONE FUROATE
     Route: 065
  8. FLORID 2% [Suspect]
     Active Substance: MICONAZOLE
     Indication: OESOPHAGEAL CANDIDIASIS
     Dosage: 5G/ 4 TIMES A DAY
     Route: 048
     Dates: start: 20140410
  9. URSO [Concomitant]
     Active Substance: URSODIOL
     Dosage: ONE TIME DOSE 200 MG
     Route: 048
  10. RHINOCORT [Concomitant]
     Active Substance: BUDESONIDE
     Route: 045
  11. ANTEBATE [Concomitant]
     Active Substance: BETAMETHASONE DIPROPIONATE
     Route: 061
  12. GASTER [Concomitant]
     Active Substance: FAMOTIDINE
     Dosage: ONE TIME DOSE 10 MG
     Route: 048
  13. ROKIFEN [Concomitant]
     Route: 048
  14. TSUMARA RIKKUNSHITO EXTRACT GRANULES [Concomitant]
     Dosage: ONE TIME DOSE 200 MG
     Route: 065
  15. BESOFTEN [Concomitant]
     Active Substance: SODIUM ALGINATE
     Route: 061
  16. LEVOCABASTINE HCL [Concomitant]
     Route: 047
  17. WARFARIN [Interacting]
     Active Substance: WARFARIN
     Indication: MARFAN^S SYNDROME
     Route: 065
  18. DEPAS [Concomitant]
     Active Substance: ETIZOLAM
     Route: 048
  19. MAXALT [Concomitant]
     Active Substance: RIZATRIPTAN BENZOATE
     Route: 048
  20. PATANOL [Concomitant]
     Active Substance: OLOPATADINE HYDROCHLORIDE
     Route: 065
  21. FLORID 2% [Suspect]
     Active Substance: MICONAZOLE
     Route: 048

REACTIONS (6)
  - International normalised ratio increased [Recovering/Resolving]
  - Drug interaction [Recovering/Resolving]
  - Tongue haemorrhage [Unknown]
  - Menorrhagia [Recovering/Resolving]
  - Arthralgia [Unknown]
  - Oedema peripheral [Unknown]

NARRATIVE: CASE EVENT DATE: 20140417
